FAERS Safety Report 19584883 (Version 1)
Quarter: 2021Q3

REPORT INFORMATION
  Report Type: Spontaneous
  Country: JP (occurrence: JP)
  Receive Date: 20210720
  Receipt Date: 20210720
  Transmission Date: 20211014
  Serious: Yes (Death)
  Sender: FDA-Public Use
  Company Number: JP-JT-EVA202100402KERYXP

PATIENT
  Sex: Female

DRUGS (1)
  1. RIONA [Suspect]
     Active Substance: FERRIC CITRATE ANHYDROUS
     Indication: HYPERPHOSPHATAEMIA
     Dosage: UNK
     Route: 048
     Dates: start: 202105

REACTIONS (2)
  - End stage renal disease [Fatal]
  - Haemoglobin decreased [Unknown]
